FAERS Safety Report 15622301 (Version 1)
Quarter: 2018Q4

REPORT INFORMATION
  Report Type: Report from Study
  Country: US (occurrence: US)
  Receive Date: 20181115
  Receipt Date: 20181115
  Transmission Date: 20190205
  Serious: Yes (Hospitalization)
  Sender: FDA-Public Use
  Company Number: US-EXELIXIS-CABO-18016140

PATIENT
  Sex: Male

DRUGS (1)
  1. CABOMETYX [Suspect]
     Active Substance: CABOZANTINIB S-MALATE
     Indication: GENITOURINARY TRACT NEOPLASM
     Dosage: 60 MG, QD
     Dates: start: 20180910, end: 20181024

REACTIONS (10)
  - Weight increased [Not Recovered/Not Resolved]
  - Muscle spasms [Unknown]
  - Platelet count decreased [Recovering/Resolving]
  - Pericardial effusion [Recovering/Resolving]
  - Rectal lesion [Not Recovered/Not Resolved]
  - Weight decreased [Recovered/Resolved]
  - Off label use [Unknown]
  - Asthenia [Not Recovered/Not Resolved]
  - Fatigue [Not Recovered/Not Resolved]
  - Blood pressure increased [Unknown]

NARRATIVE: CASE EVENT DATE: 2018
